FAERS Safety Report 11895464 (Version 1)
Quarter: 2016Q1

REPORT INFORMATION
  Report Type: Spontaneous
  Country: IT (occurrence: IT)
  Receive Date: 20160107
  Receipt Date: 20160107
  Transmission Date: 20160526
  Serious: Yes (Death)
  Sender: FDA-Public Use
  Company Number: IT-CELGENE-ITA-2015126642

PATIENT
  Age: 68 Year

DRUGS (3)
  1. AZACITIDINE. [Suspect]
     Active Substance: AZACITIDINE
     Route: 050
     Dates: start: 20130214
  2. AZACITIDINE. [Suspect]
     Active Substance: AZACITIDINE
     Indication: MYELODYSPLASTIC SYNDROME
     Route: 050
     Dates: start: 20120817
  3. AZACITIDINE. [Suspect]
     Active Substance: AZACITIDINE
     Route: 050
     Dates: end: 20130531

REACTIONS (1)
  - Death [Fatal]

NARRATIVE: CASE EVENT DATE: 20130531
